FAERS Safety Report 25543829 (Version 1)
Quarter: 2025Q3

REPORT INFORMATION
  Report Type: Spontaneous
  Country: TR (occurrence: TR)
  Receive Date: 20250711
  Receipt Date: 20250711
  Transmission Date: 20251021
  Serious: Yes (Hospitalization, Other)
  Sender: RANBAXY
  Company Number: TR-SUN PHARMACEUTICAL INDUSTRIES LTD-2025R1-516014

PATIENT
  Age: 19 Year
  Sex: Female

DRUGS (1)
  1. BUPROPION [Suspect]
     Active Substance: BUPROPION
     Indication: Product used for unknown indication
     Route: 048

REACTIONS (10)
  - Agitation [Recovering/Resolving]
  - Disorientation [Recovering/Resolving]
  - Generalised tonic-clonic seizure [Recovering/Resolving]
  - Hallucination, visual [Recovering/Resolving]
  - Myoclonus [Recovering/Resolving]
  - Overdose [Unknown]
  - Opsoclonus [Recovering/Resolving]
  - Suicide attempt [Unknown]
  - Toxicity to various agents [Unknown]
  - Sinus tachycardia [Recovering/Resolving]
